FAERS Safety Report 4911088-3 (Version None)
Quarter: 2006Q1

REPORT INFORMATION
  Report Type: 
  Country: None (occurrence: None)
  Receive Date: 20060209
  Receipt Date: 20060127
  Transmission Date: 20060701
  Serious: Yes (Hospitalization)
  Sender: FDA-Public Use
  Company Number: 2006015639

PATIENT
  Age: 30 Year
  Sex: Female

DRUGS (2)
  1. MEDROL [Suspect]
     Indication: ILL-DEFINED DISORDER
  2. LEVOTHYROXINE SODIUM [Suspect]
     Indication: ILL-DEFINED DISORDER

REACTIONS (2)
  - ABORTION [None]
  - DRUG EXPOSURE DURING PREGNANCY [None]
